FAERS Safety Report 6756428-8 (Version None)
Quarter: 2010Q2

REPORT INFORMATION
  Report Type: 
  Country: None (occurrence: None)
  Receive Date: 20100604
  Receipt Date: 20100527
  Transmission Date: 20101027
  Serious: Yes (Hospitalization, Other)
  Sender: FDA-Public Use
  Company Number: A0860891A

PATIENT
  Age: 59 Year
  Sex: Male

DRUGS (1)
  1. ELTROMBOPAG [Suspect]
     Indication: IDIOPATHIC THROMBOCYTOPENIC PURPURA
     Dosage: 50MG PER DAY
     Route: 048
     Dates: start: 20090828, end: 20091214

REACTIONS (17)
  - ABDOMINAL DISTENSION [None]
  - ABDOMINAL PAIN [None]
  - ASCITES [None]
  - BLOOD CREATININE INCREASED [None]
  - DIARRHOEA [None]
  - DRUG INEFFECTIVE [None]
  - EPISTAXIS [None]
  - HAEMOCHROMATOSIS [None]
  - HEPATIC CIRRHOSIS [None]
  - HEPATIC FAILURE [None]
  - IDIOPATHIC THROMBOCYTOPENIC PURPURA [None]
  - ILEUS [None]
  - IRON OVERLOAD [None]
  - MYELODYSPLASTIC SYNDROME [None]
  - PERIDIVERTICULAR ABSCESS [None]
  - SPLENOMEGALY [None]
  - THROMBOCYTOPENIA [None]
